FAERS Safety Report 13412595 (Version 1)
Quarter: 2017Q2

REPORT INFORMATION
  Report Type: Spontaneous
  Country: US (occurrence: US)
  Receive Date: 20170406
  Receipt Date: 20170406
  Transmission Date: 20170830
  Serious: Yes (Hospitalization)
  Sender: FDA-Public Use
  Company Number: None

PATIENT
  Age: 69 Year
  Sex: Male
  Weight: 82.8 kg

DRUGS (2)
  1. PEMBROLIZUMAB 100MG/4ML MERCK [Suspect]
     Active Substance: PEMBROLIZUMAB
     Indication: SQUAMOUS CELL CARCINOMA OF THE TONGUE
     Dosage: ?          OTHER FREQUENCY:EVERY 3 WEEKS;?
     Route: 041
     Dates: start: 20170227, end: 20170227
  2. HYDROCODONE-ACETAMINOPHEN [Concomitant]
     Active Substance: ACETAMINOPHEN\HYDROCODONE

REACTIONS (12)
  - Loss of personal independence in daily activities [None]
  - Hypoxia [None]
  - Blood creatinine increased [None]
  - Rash [None]
  - Bronchial secretion retention [None]
  - Blood glucose increased [None]
  - Hypernatraemia [None]
  - Blood urea increased [None]
  - Asthenia [None]
  - Diabetic ketoacidosis [None]
  - Mouth haemorrhage [None]
  - Pneumothorax [None]

NARRATIVE: CASE EVENT DATE: 20170313
